FAERS Safety Report 21568287 (Version 1)
Quarter: 2022Q4

REPORT INFORMATION
  Report Type: Spontaneous
  Country: US (occurrence: None)
  Receive Date: 20221106
  Receipt Date: 20221106
  Transmission Date: 20230112
  Serious: Yes (unspecified)
  Sender: FDA-Public Use
  Company Number: None

PATIENT

DRUGS (2)
  1. ESTRADIOL [Suspect]
     Active Substance: ESTRADIOL
  2. MEDROXYPROGESTERONE ACETATE [Suspect]
     Active Substance: MEDROXYPROGESTERONE ACETATE

REACTIONS (9)
  - Product dispensing error [None]
  - Product dispensing error [None]
  - Product label confusion [None]
  - Product packaging confusion [None]
  - Transcription medication error [None]
  - Wrong product administered [None]
  - Product label confusion [None]
  - Product packaging confusion [None]
  - Product confusion [None]
